FAERS Safety Report 25232718 (Version 1)
Quarter: 2025Q2

REPORT INFORMATION
  Report Type: Spontaneous
  Country: SK (occurrence: SK)
  Receive Date: 20250424
  Receipt Date: 20250424
  Transmission Date: 20250717
  Serious: Yes (Death, Other)
  Sender: ABBVIE
  Company Number: SK-ABBVIE-6245862

PATIENT
  Age: 53 Year
  Sex: Female

DRUGS (6)
  1. ELAHERE [Suspect]
     Active Substance: MIRVETUXIMAB SORAVTANSINE-GYNX
     Indication: Ovarian neoplasm
     Route: 042
     Dates: start: 20231113
  2. ELAHERE [Suspect]
     Active Substance: MIRVETUXIMAB SORAVTANSINE-GYNX
     Indication: Ovarian neoplasm
     Route: 042
     Dates: start: 20240103
  3. ELAHERE [Suspect]
     Active Substance: MIRVETUXIMAB SORAVTANSINE-GYNX
     Indication: Ovarian neoplasm
     Route: 042
     Dates: start: 20231213
  4. ACETAMINOPHEN [Concomitant]
     Active Substance: ACETAMINOPHEN
     Indication: Product used for unknown indication
  5. DIPHENHYDRAMINE [Concomitant]
     Active Substance: DIPHENHYDRAMINE
     Indication: Product used for unknown indication
  6. DEXAMETHASONE [Concomitant]
     Active Substance: DEXAMETHASONE
     Indication: Product used for unknown indication

REACTIONS (6)
  - Sepsis [Fatal]
  - Nephropathy [Unknown]
  - Liver disorder [Unknown]
  - Thrombosis [Unknown]
  - Pulmonary embolism [Unknown]
  - Ascites [Unknown]
